FAERS Safety Report 9018014 (Version 2)
Quarter: 2013Q1

REPORT INFORMATION
  Report Type: Report from Study
  Country: JP (occurrence: JP)
  Receive Date: 20130115
  Receipt Date: 20130115
  Transmission Date: 20140127
  Serious: Yes (Death, Other)
  Sender: FDA-Public Use
  Company Number: JP-SHIRE-ALL1-2012-03084

PATIENT
  Age: 76 Year
  Sex: Male

DRUGS (12)
  1. 405 (LANTHANUM CARBONATE) [Suspect]
     Indication: HYPERPHOSPHATAEMIA
     Dosage: 750 MG (DAILY DOSE), UNKNOWN
     Route: 048
     Dates: start: 20091113, end: 20100507
  2. ALFAROL [Concomitant]
     Indication: PRODUCT USED FOR UNKNOWN INDICATION
     Dosage: 2 ?G, 1X/WEEK
     Route: 048
     Dates: start: 20080404, end: 20100507
  3. ALFAROL [Concomitant]
     Dosage: 0.25 ?G, 1X/WEEK
     Route: 048
     Dates: start: 20100508
  4. LAC B [Concomitant]
     Indication: PRODUCT USED FOR UNKNOWN INDICATION
     Dosage: 3 G, UNKNOWN
     Route: 048
     Dates: start: 20080725
  5. LOCHOL                             /01224502/ [Concomitant]
     Indication: PRODUCT USED FOR UNKNOWN INDICATION
     Dosage: 30 MG, UNKNOWN
     Route: 048
     Dates: start: 20080404
  6. BAYASPIRIN [Concomitant]
     Indication: PRODUCT USED FOR UNKNOWN INDICATION
     Dosage: 100 MG, UNKNOWN
     Route: 048
     Dates: start: 20080404
  7. BLOPRESS [Concomitant]
     Indication: PRODUCT USED FOR UNKNOWN INDICATION
     Dosage: 8 MG, UNKNOWN
     Route: 048
     Dates: start: 20081114
  8. AMLODIN [Concomitant]
     Indication: PRODUCT USED FOR UNKNOWN INDICATION
     Dosage: 7.5 MG, UNKNOWN
     Route: 048
     Dates: start: 20090904
  9. ITOROL [Concomitant]
     Indication: PRODUCT USED FOR UNKNOWN INDICATION
     Dosage: 40 MG, UNKNOWN
     Route: 048
     Dates: start: 20080404
  10. SIGMART [Concomitant]
     Indication: PRODUCT USED FOR UNKNOWN INDICATION
     Dosage: 10 MG, UNKNOWN
     Route: 048
     Dates: start: 20080404
  11. NEUROVITAN                         /00280501/ [Concomitant]
     Indication: PRODUCT USED FOR UNKNOWN INDICATION
     Dosage: 2 DF, UNKNOWN
     Route: 048
     Dates: start: 20080404
  12. DOXAZON [Concomitant]
     Indication: HYPERTENSION
     Dosage: 4 MG, UNKNOWN
     Route: 048
     Dates: start: 20100108, end: 20100916

REACTIONS (2)
  - Metastatic neoplasm [Fatal]
  - Hypoalbuminaemia [Fatal]
